FAERS Safety Report 24185994 (Version 3)
Quarter: 2024Q3

REPORT INFORMATION
  Report Type: Spontaneous
  Country: US (occurrence: US)
  Receive Date: 20240807
  Receipt Date: 20240905
  Transmission Date: 20241017
  Serious: No
  Sender: ABBVIE
  Company Number: US-ABBVIE-5865905

PATIENT
  Age: 75 Year
  Sex: Male
  Weight: 79 kg

DRUGS (2)
  1. CREON [Suspect]
     Active Substance: PANCRELIPASE AMYLASE\PANCRELIPASE LIPASE\PANCRELIPASE PROTEASE
     Indication: Pancreatic failure
     Dosage: FORM STRENGTH: 36000 UNIT?DOSE FREQUENCY: 1 EACH MEAL AND 1 EACH SNACK?START DATE: FEB 2024 OR MA...
     Route: 048
     Dates: start: 202402, end: 20240802
  2. LEVOTHYROXINE [Concomitant]
     Active Substance: LEVOTHYROXINE\LEVOTHYROXINE SODIUM
     Indication: Thyroid disorder
     Route: 065

REACTIONS (9)
  - Abdominal distension [Recovered/Resolved]
  - Lip dry [Not Recovered/Not Resolved]
  - Drug hypersensitivity [Unknown]
  - Rash [Recovering/Resolving]
  - Gastrooesophageal reflux disease [Recovered/Resolved]
  - Medical device site urticaria [Unknown]
  - Urticaria [Unknown]
  - Headache [Recovered/Resolved]
  - Skin burning sensation [Recovering/Resolving]

NARRATIVE: CASE EVENT DATE: 20240301
